FAERS Safety Report 6491895-9 (Version None)
Quarter: 2009Q4

REPORT INFORMATION
  Report Type: 
  Country: None (occurrence: None)
  Receive Date: 20091208
  Receipt Date: 20091125
  Transmission Date: 20100525
  Serious: Yes (Life-Threatening, Hospitalization, Other)
  Sender: FDA-Public Use
  Company Number: A-CH2009-30902

PATIENT
  Age: 52 Year
  Sex: Female
  Weight: 71 kg

DRUGS (6)
  1. TRACLEER [Suspect]
     Indication: SKIN ULCER
     Dosage: 125 MG, BID, ORAL; 125 MG, OD, ORAL
     Route: 048
     Dates: start: 20090803, end: 20090831
  2. TRACLEER [Suspect]
     Indication: SKIN ULCER
     Dosage: 125 MG, BID, ORAL; 125 MG, OD, ORAL
     Route: 048
     Dates: start: 20090901
  3. AGAPURIN      (PENTOXIFYLINE) [Concomitant]
  4. ANOPYRIN        (ACETYLSALICYLIC ACID) [Concomitant]
  5. VITAMIN E [Concomitant]
  6. LAGOSA     (SILYBUM MARIANUM) [Concomitant]

REACTIONS (1)
  - BREAST CANCER FEMALE [None]
